FAERS Safety Report 12179062 (Version 1)
Quarter: 2016Q1

REPORT INFORMATION
  Report Type: Spontaneous
  Country: US (occurrence: US)
  Receive Date: 20160314
  Receipt Date: 20160314
  Transmission Date: 20160526
  Serious: Yes (Other)
  Sender: FDA-Public Use
  Company Number: US-SA-2016SA038234

PATIENT
  Sex: Female

DRUGS (2)
  1. SOLOSTAR [Concomitant]
     Active Substance: DEVICE
     Dates: start: 201509
  2. TOUJEO [Suspect]
     Active Substance: INSULIN GLARGINE
     Indication: TYPE 2 DIABETES MELLITUS
     Dosage: DOSE:39 UNIT(S)
     Route: 065
     Dates: start: 201509

REACTIONS (8)
  - Poor peripheral circulation [Unknown]
  - Injection site pain [Unknown]
  - Dizziness [Unknown]
  - Hypoaesthesia [Unknown]
  - Glycosylated haemoglobin increased [Recovering/Resolving]
  - Blood glucose increased [Unknown]
  - Gait disturbance [Unknown]
  - Lipodystrophy acquired [Unknown]
